FAERS Safety Report 5947848-X (Version None)
Quarter: 2008Q4

REPORT INFORMATION
  Report Type: 
  Country: None (occurrence: None)
  Receive Date: 20081110
  Receipt Date: 20081110
  Transmission Date: 20090506
  Serious: Yes (Other)
  Sender: FDA-Public Use
  Company Number: None

PATIENT
  Age: 55 Year
  Sex: Female

DRUGS (1)
  1. ZYRTEC [Suspect]
     Indication: HYPERSENSITIVITY
     Dosage: 10MG ONCE DAILY PO
     Route: 048
     Dates: start: 20080701, end: 20080714

REACTIONS (5)
  - BURNING SENSATION [None]
  - DEPRESSION [None]
  - PRODUCT QUALITY ISSUE [None]
  - SINUS DISORDER [None]
  - SUICIDAL IDEATION [None]
